FAERS Safety Report 4541662-8 (Version None)
Quarter: 2004Q4

REPORT INFORMATION
  Report Type: 
  Country: None (occurrence: None)
  Receive Date: 20041230
  Receipt Date: 20041118
  Transmission Date: 20050328
  Serious: Yes (Life-Threatening, Hospitalization, Other)
  Sender: FDA-Public Use
  Company Number: VE-BRISTOL-MYERS SQUIBB COMPANY-12771762

PATIENT
  Age: 50 Year
  Sex: Male

DRUGS (4)
  1. ATAZANAVIR [Suspect]
     Indication: HIV INFECTION
     Dosage: THERAPY INTERRUPTED 12-NOV-2004, RESTARTED 17-NOV-2004, INTERRUPTED 09-DEC-2004
     Route: 048
     Dates: start: 20040816
  2. STAVUDINE [Suspect]
     Indication: HIV INFECTION
     Dosage: THERAPY INTERRUPTED 12-NOV-2004, RESTARTED 17-NOV-2004, INTERRUPTED 09-DEC-2004
     Dates: start: 20040816
  3. VIDEX [Suspect]
     Indication: HIV INFECTION
     Dosage: THERAPY INTERRUPTED 12-NOV-2004, RESTARTED 17-NOV-2004, INTERRUPTED 09-DEC-2004
     Dates: start: 20040816
  4. RITONAVIR [Concomitant]
     Indication: HIV INFECTION
     Dosage: THERAPY INTERRUPTED 12-NOV-2004, RESTARTED 17-NOV-2004, INTERRUPTED 09-DEC-2004
     Dates: start: 20040816

REACTIONS (10)
  - BLOOD SODIUM DECREASED [None]
  - DEHYDRATION [None]
  - ELECTROLYTE IMBALANCE [None]
  - ENTEROCOCCAL INFECTION [None]
  - GASTROENTERITIS CRYPTOSPORIDIAL [None]
  - HYPOKALAEMIA [None]
  - LACTIC ACIDOSIS [None]
  - METABOLIC ACIDOSIS [None]
  - RECTAL TENESMUS [None]
  - VOMITING [None]
